FAERS Safety Report 22334781 (Version 2)
Quarter: 2024Q2

REPORT INFORMATION
  Report Type: Spontaneous
  Country: US (occurrence: None)
  Receive Date: 20230517
  Receipt Date: 20240524
  Transmission Date: 20240716
  Serious: No
  Sender: FDA-Public Use
  Company Number: US-ROCHE-3128368

PATIENT
  Age: 41 Year
  Sex: Female

DRUGS (3)
  1. ACTEMRA [Suspect]
     Active Substance: TOCILIZUMAB
     Indication: Crohn^s disease
     Dosage: STRENGTH: 162MG/0.9M
     Route: 058
     Dates: start: 20220415
  2. ACTEMRA [Suspect]
     Active Substance: TOCILIZUMAB
  3. ACTEMRA [Suspect]
     Active Substance: TOCILIZUMAB

REACTIONS (3)
  - Off label use [Unknown]
  - Condition aggravated [Unknown]
  - Maternal exposure timing unspecified [Unknown]
